FAERS Safety Report 8951462 (Version 1)
Quarter: 2012Q4

REPORT INFORMATION
  Report Type: 
  Country: US (occurrence: US)
  Receive Date: 20121204
  Receipt Date: 20121204
  Transmission Date: 20130627
  Serious: No
  Sender: FDA-Public Use
  Company Number: US-AMGEN-USASP2012063066

PATIENT
  Age: 60 Year
  Sex: Female

DRUGS (4)
  1. ENBREL [Suspect]
     Indication: ANKYLOSING SPONDYLITIS
     Dosage: 50 mg, qwk
     Dates: start: 20110601
  2. ENBREL [Suspect]
     Indication: RHEUMATOID ARTHRITIS
  3. METHOTREXATE [Concomitant]
     Dosage: 2.5 mg, 8 pills weekly
     Dates: start: 201206
  4. RESTASIS [Concomitant]
     Dosage: UNK

REACTIONS (15)
  - Vision blurred [Not Recovered/Not Resolved]
  - Halo vision [Not Recovered/Not Resolved]
  - Metamorphopsia [Not Recovered/Not Resolved]
  - Dry eye [Not Recovered/Not Resolved]
  - Dysgeusia [Not Recovered/Not Resolved]
  - Weight decreased [Not Recovered/Not Resolved]
  - Decreased appetite [Not Recovered/Not Resolved]
  - Fatigue [Not Recovered/Not Resolved]
  - Back pain [Not Recovered/Not Resolved]
  - Neck pain [Not Recovered/Not Resolved]
  - Pain in extremity [Not Recovered/Not Resolved]
  - Gait disturbance [Not Recovered/Not Resolved]
  - Dyspnoea [Not Recovered/Not Resolved]
  - Nausea [Not Recovered/Not Resolved]
  - Lethargy [Not Recovered/Not Resolved]
